FAERS Safety Report 8368370-X (Version None)
Quarter: 2012Q2

REPORT INFORMATION
  Report Type: 
  Country: None (occurrence: None)
  Receive Date: 20120517
  Receipt Date: 20120508
  Transmission Date: 20120825
  Serious: Yes (Hospitalization)
  Sender: FDA-Public Use
  Company Number: US-ELI_LILLY_AND_COMPANY-US201004005688

PATIENT
  Sex: Female

DRUGS (24)
  1. FORTEO [Suspect]
     Dosage: 20 UG, QD
     Route: 065
  2. DEXLANSOPRAZOLE [Concomitant]
     Indication: GASTROOESOPHAGEAL REFLUX DISEASE
     Dosage: 60 MG, 2/D
  3. BENICAR [Concomitant]
     Indication: HYPERTENSION
     Dosage: 20 MG, UNK
  4. ASPIRIN [Concomitant]
     Dosage: 80 MG, UNK
  5. BACTRIM [Concomitant]
  6. PROTONIX [Concomitant]
     Dosage: 40 MG, UNK
  7. VITAMIN D [Concomitant]
  8. FORTEO [Suspect]
     Dosage: 20 UG, QD
     Route: 065
  9. SYNTHROID [Concomitant]
     Dosage: 100 UG, UNK
  10. SYNTHROID [Concomitant]
     Dosage: 88 UG, UNK
  11. FORTEO [Suspect]
     Indication: OSTEOPOROSIS
     Dosage: 20 UG, DAILY (1/D)
     Route: 065
     Dates: start: 20100413, end: 20100422
  12. ZOCOR [Concomitant]
     Dosage: 80 MG, UNK
  13. FORTEO [Suspect]
     Dosage: 20 UG, DAILY (1/D)
     Route: 065
     Dates: start: 20100615
  14. REGLAN [Concomitant]
     Dosage: 10 MG, UNK
  15. PREVACID [Concomitant]
  16. CALCIUM [Concomitant]
  17. FORTEO [Suspect]
     Dosage: 20 UG, DAILY (1/D)
     Route: 065
  18. ALLOPURINOL [Concomitant]
  19. ALAMAST [Concomitant]
     Indication: DRY EYE
  20. PHENERGAN [Concomitant]
  21. CORTISONE ACETATE [Concomitant]
     Indication: KNEE ARTHROPLASTY
     Dosage: UNK
     Dates: start: 20100317
  22. FORTEO [Suspect]
     Dosage: 20 UG, QD
     Route: 065
  23. MULTIVITAMIN [Concomitant]
     Indication: MACULAR DEGENERATION
  24. PREDNISONE [Concomitant]

REACTIONS (35)
  - EAR DISORDER [None]
  - RETCHING [None]
  - RESPIRATORY TRACT INFECTION [None]
  - EYE PAIN [None]
  - ASTHENIA [None]
  - ADRENAL INSUFFICIENCY [None]
  - THYROID DISORDER [None]
  - FEELING ABNORMAL [None]
  - INFLUENZA [None]
  - FEELING COLD [None]
  - PAROSMIA [None]
  - GAIT DISTURBANCE [None]
  - GASTRITIS [None]
  - PILOERECTION [None]
  - GASTRIC DISORDER [None]
  - BRONCHITIS [None]
  - FEEDING DISORDER [None]
  - HYPERHIDROSIS [None]
  - NAUSEA [None]
  - GOUT [None]
  - GASTROENTERITIS VIRAL [None]
  - DYSGEUSIA [None]
  - FLUSHING [None]
  - PHARYNGEAL ERYTHEMA [None]
  - HEADACHE [None]
  - MALAISE [None]
  - ENDOCRINE DISORDER [None]
  - MACULAR DEGENERATION [None]
  - MOBILITY DECREASED [None]
  - FATIGUE [None]
  - NEPHROLITHIASIS [None]
  - CHILLS [None]
  - CYSTITIS [None]
  - WEIGHT DECREASED [None]
  - HYPERSENSITIVITY [None]
